FAERS Safety Report 25464768 (Version 3)
Quarter: 2025Q3

REPORT INFORMATION
  Report Type: Spontaneous
  Country: US (occurrence: US)
  Receive Date: 20250622
  Receipt Date: 20250902
  Transmission Date: 20251020
  Serious: Yes (Hospitalization)
  Sender: SANOFI AVENTIS
  Company Number: US-SA-2025SA175061

PATIENT
  Age: 1 Year
  Sex: Female
  Weight: 11.36 kg

DRUGS (14)
  1. LUMIZYME [Suspect]
     Active Substance: ALGLUCOSIDASE ALFA
     Indication: Glycogen storage disease type II
     Dosage: 450 MG, QW
     Route: 042
     Dates: end: 2025
  2. ACETAMINOPHEN [Concomitant]
     Active Substance: ACETAMINOPHEN
  3. EPINEPHRINE [Concomitant]
     Active Substance: EPINEPHRINE
  4. STERILE WATER [Concomitant]
     Active Substance: WATER
  5. TYLENOL [Concomitant]
     Active Substance: ACETAMINOPHEN
  6. SODIUM CHLORIDE [Concomitant]
     Active Substance: SODIUM CHLORIDE
  7. HEPARIN [Concomitant]
     Active Substance: HEPARIN SODIUM
  8. SODIUM CHLORIDE [Concomitant]
     Active Substance: SODIUM CHLORIDE
  9. LIDOCAINE [Concomitant]
     Active Substance: LIDOCAINE
  10. PRILOCAINE [Concomitant]
     Active Substance: PRILOCAINE
  11. PROBIOTICS [PROBIOTICS NOS] [Concomitant]
  12. CETIRIZINE HYDROCHLORIDE [Concomitant]
     Active Substance: CETIRIZINE HYDROCHLORIDE
  13. METHYLPREDNISOLONE [Concomitant]
     Active Substance: METHYLPREDNISOLONE
  14. DIPHENHYDRAMINE [Concomitant]
     Active Substance: DIPHENHYDRAMINE

REACTIONS (6)
  - Device related infection [Unknown]
  - Sinusitis [Unknown]
  - Ear infection [Unknown]
  - Nasopharyngitis [Unknown]
  - Staphylococcal infection [Unknown]
  - Inappropriate schedule of product administration [Unknown]

NARRATIVE: CASE EVENT DATE: 20240101
